FAERS Safety Report 11940304 (Version 1)
Quarter: 2016Q1

REPORT INFORMATION
  Report Type: Spontaneous
  Country: US (occurrence: None)
  Receive Date: 20160122
  Receipt Date: 20160122
  Transmission Date: 20160526
  Serious: Yes (Other)
  Sender: FDA-Public Use
  Company Number: US-MDT-ADR-2015-02424

PATIENT
  Age: 38 Year
  Sex: Male

DRUGS (2)
  1. BACLOFEN INTRATHECAL [Suspect]
     Active Substance: BACLOFEN
     Indication: MUSCLE SPASTICITY
  2. GABLOFEN [Suspect]
     Active Substance: BACLOFEN
     Dosage: 550MCG/DAY

REACTIONS (6)
  - CSF culture positive [None]
  - Implant site erythema [None]
  - Staphylococcal infection [None]
  - Pocket erosion [None]
  - Skin atrophy [None]
  - Staphylococcus test positive [None]
